FAERS Safety Report 11141318 (Version 1)
Quarter: 2015Q2

REPORT INFORMATION
  Report Type: Spontaneous
  Country: US (occurrence: US)
  Receive Date: 20150527
  Receipt Date: 20150527
  Transmission Date: 20150821
  Serious: No
  Sender: FDA-Public Use
  Company Number: US-MALLINCKRODT-QSC-2014-0647

PATIENT
  Sex: Female

DRUGS (4)
  1. H.P. ACTHAR [Suspect]
     Active Substance: CORTICOTROPIN
     Indication: FOCAL SEGMENTAL GLOMERULOSCLEROSIS
     Dosage: 80 UNITS, BIW
     Dates: start: 20140608
  2. H.P. ACTHAR [Suspect]
     Active Substance: CORTICOTROPIN
     Dosage: .75 ML, X2 INJECTIONS
     Dates: start: 2014, end: 2014
  3. H.P. ACTHAR [Suspect]
     Active Substance: CORTICOTROPIN
     Dosage: .25 ML, X2 INJECTIONS
     Dates: start: 2014
  4. H.P. ACTHAR [Suspect]
     Active Substance: CORTICOTROPIN
     Dosage: .5 ML, X2 INJECTIONS
     Dates: start: 2014, end: 2014

REACTIONS (1)
  - Energy increased [Unknown]

NARRATIVE: CASE EVENT DATE: 2014
